FAERS Safety Report 19146817 (Version 5)
Quarter: 2022Q3

REPORT INFORMATION
  Report Type: Spontaneous
  Country: US (occurrence: US)
  Receive Date: 20210416
  Receipt Date: 20220726
  Transmission Date: 20221027
  Serious: No
  Sender: FDA-Public Use
  Company Number: US-PFIZER INC-2021378497

PATIENT
  Age: 59 Year
  Sex: Female

DRUGS (3)
  1. IBRANCE [Suspect]
     Active Substance: PALBOCICLIB
     Dosage: 125 MG
     Dates: start: 20210101
  2. IBRANCE [Suspect]
     Active Substance: PALBOCICLIB
     Dosage: 125 MG
     Dates: start: 20210312
  3. IBRANCE [Suspect]
     Active Substance: PALBOCICLIB
     Dosage: 125 MG
     Dates: start: 20210222

REACTIONS (17)
  - Fatigue [Unknown]
  - Dry skin [Unknown]
  - Weight increased [Unknown]
  - Madarosis [Unknown]
  - Xeroderma [Not Recovered/Not Resolved]
  - COVID-19 [Recovering/Resolving]
  - Skin exfoliation [Unknown]
  - Alopecia [Unknown]
  - Nail disorder [Unknown]
  - Onychoclasis [Unknown]
  - Illness [Unknown]
  - Pruritus [Unknown]
  - Skin atrophy [Unknown]
  - Alopecia [Unknown]
  - Skin haemorrhage [Unknown]
  - Decreased appetite [Unknown]
  - Gastrooesophageal reflux disease [Unknown]

NARRATIVE: CASE EVENT DATE: 20210101
